FAERS Safety Report 11783705 (Version 1)
Quarter: 2015Q4

REPORT INFORMATION
  Report Type: Report from Study
  Country: US (occurrence: US)
  Receive Date: 20151127
  Receipt Date: 20151127
  Transmission Date: 20160305
  Serious: Yes (Other)
  Sender: FDA-Public Use
  Company Number: PHHO2013US008060

PATIENT
  Age: 61 Year
  Sex: Male
  Weight: 68.7 kg

DRUGS (1)
  1. GILENYA [Suspect]
     Active Substance: FINGOLIMOD HYDROCHLORIDE
     Indication: PRIMARY PROGRESSIVE MULTIPLE SCLEROSIS
     Dosage: 0.5 MG, QD
     Route: 048
     Dates: start: 20100922

REACTIONS (2)
  - Squamous cell carcinoma of skin [Not Recovered/Not Resolved]
  - Basal cell carcinoma [Not Recovered/Not Resolved]

NARRATIVE: CASE EVENT DATE: 20130425
